FAERS Safety Report 5812677-4 (Version None)
Quarter: 2008Q3

REPORT INFORMATION
  Report Type: 
  Country: None (occurrence: None)
  Receive Date: 20080711
  Receipt Date: 20080702
  Transmission Date: 20090109
  Serious: Yes (Hospitalization)
  Sender: FDA-Public Use
  Company Number: CERZ-1000277

PATIENT
  Age: 53 Year
  Sex: Male
  Weight: 79 kg

DRUGS (11)
  1. CEREZYME [Suspect]
     Indication: GAUCHER'S DISEASE
     Dosage: 4800 U, Q2W, INTRAVENOUS
     Route: 042
     Dates: start: 20050101
  2. CARDURA [Concomitant]
  3. LIPITOR [Concomitant]
  4. HYDROCHLOROTHIAZIDE [Concomitant]
  5. POTASSIUM CHLORIDE [Concomitant]
  6. ASCORBIC ACID [Concomitant]
  7. MULTIVITAMIN [Concomitant]
  8. VITAMIN D [Concomitant]
  9. CALCIUM (CALCIUM) [Concomitant]
  10. INSULIN (INSULIN) [Concomitant]
  11. SYNTHROID [Concomitant]

REACTIONS (1)
  - SUBDURAL HAEMATOMA [None]
